FAERS Safety Report 4500083-4 (Version None)
Quarter: 2004Q4

REPORT INFORMATION
  Report Type: 
  Country: None (occurrence: None)
  Receive Date: 20041112
  Receipt Date: 20040903
  Transmission Date: 20050328
  Serious: Yes (Life-Threatening, Hospitalization, Other)
  Sender: FDA-Public Use
  Company Number: GB-BRISTOL-MYERS SQUIBB COMPANY-12691366

PATIENT

DRUGS (5)
  1. PACLITAXEL [Suspect]
     Indication: BREAST CANCER
     Dosage: THERAPY DATES: 04-JUN-2004 TO 27-AUG-2004
     Dates: start: 20040827, end: 20040827
  2. MORPHINE SULFATE [Concomitant]
     Dates: start: 20040604
  3. ZOPICLONE [Concomitant]
     Dates: start: 20040423
  4. SODIUM BICARBONATE [Concomitant]
     Dates: start: 20030811
  5. OMPRAZOLE [Concomitant]
     Dates: start: 20030826

REACTIONS (4)
  - ANAEMIA [None]
  - ARTHRALGIA [None]
  - DYSPNOEA [None]
  - PLEURAL EFFUSION [None]
